FAERS Safety Report 9853417 (Version 1)
Quarter: 2014Q1

REPORT INFORMATION
  Report Type: Spontaneous
  Country: US (occurrence: US)
  Receive Date: 20140129
  Receipt Date: 20140129
  Transmission Date: 20141002
  Serious: Yes (Hospitalization, Other)
  Sender: FDA-Public Use
  Company Number: US-BAXTER-2014BAX003483

PATIENT
  Age: 83 Year
  Sex: Female
  Weight: 67.1 kg

DRUGS (1)
  1. DIANEAL LOW CALCIUM [Suspect]
     Indication: RENAL FAILURE CHRONIC
     Route: 033
     Dates: start: 2013, end: 20140120

REACTIONS (5)
  - Weight increased [Unknown]
  - Pleural effusion [Recovering/Resolving]
  - Pleuroperitoneal communication [Not Recovered/Not Resolved]
  - Discomfort [Recovered/Resolved]
  - Hypertension [Unknown]
